FAERS Safety Report 20127528 (Version 1)
Quarter: 2021Q4

REPORT INFORMATION
  Report Type: Spontaneous
  Country: FR (occurrence: FR)
  Receive Date: 20211129
  Receipt Date: 20211129
  Transmission Date: 20220303
  Serious: Yes (Hospitalization)
  Sender: FDA-Public Use
  Company Number: None

PATIENT
  Age: 73 Year
  Sex: Female

DRUGS (5)
  1. VALACYCLOVIR HYDROCHLORIDE [Suspect]
     Active Substance: VALACYCLOVIR HYDROCHLORIDE
     Indication: Infection prophylaxis
     Dosage: 1 GRAM
     Route: 048
     Dates: start: 20210908, end: 20210917
  2. BENDAMUSTINE HYDROCHLORIDE [Suspect]
     Active Substance: BENDAMUSTINE HYDROCHLORIDE
     Indication: Follicular lymphoma
     Dosage: UNK
     Route: 042
     Dates: start: 20210908, end: 20210909
  3. ATOVAQUONE [Suspect]
     Active Substance: ATOVAQUONE
     Indication: Infection prophylaxis
     Dosage: 3 DOSAGE FORM, CUILLERES A SOUPE
     Route: 048
     Dates: start: 20210908, end: 20210915
  4. OBINUTUZUMAB [Suspect]
     Active Substance: OBINUTUZUMAB
     Indication: Follicular lymphoma
     Dosage: 1 DOSAGE FORM, QW
     Route: 042
     Dates: start: 20210908, end: 20210915
  5. PENTAMIDINE MESYLATE [Suspect]
     Active Substance: PENTAMIDINE MESYLATE
     Indication: Infection prophylaxis
     Dosage: 1 DOSAGE FORM
     Route: 048
     Dates: start: 20210915, end: 20210915

REACTIONS (2)
  - Pyrexia [Not Recovered/Not Resolved]
  - Rash maculo-papular [Not Recovered/Not Resolved]

NARRATIVE: CASE EVENT DATE: 20210920
